FAERS Safety Report 25229986 (Version 1)
Quarter: 2025Q2

REPORT INFORMATION
  Report Type: Spontaneous
  Country: JP (occurrence: JP)
  Receive Date: 20250423
  Receipt Date: 20250423
  Transmission Date: 20250716
  Serious: Yes (Other)
  Sender: BOEHRINGER INGELHEIM
  Company Number: JP-NBI-2025-BI-022574

PATIENT
  Age: 89 Year
  Sex: Female

DRUGS (1)
  1. IDARUCIZUMAB [Suspect]
     Active Substance: IDARUCIZUMAB
     Indication: Procoagulant therapy

REACTIONS (2)
  - Haemorrhagic cerebral infarction [Unknown]
  - Embolic stroke [Unknown]

NARRATIVE: CASE EVENT DATE: 20250417
